FAERS Safety Report 9944873 (Version 1)
Quarter: 2014Q1

REPORT INFORMATION
  Report Type: Report from Study
  Country: US (occurrence: US)
  Receive Date: 20140303
  Receipt Date: 20140303
  Transmission Date: 20141002
  Serious: No
  Sender: FDA-Public Use
  Company Number: US-ABBVIE-13P-163-1056339-00

PATIENT
  Sex: Male

DRUGS (5)
  1. HUMIRA [Suspect]
     Indication: CROHN^S DISEASE
     Dates: start: 201103, end: 201103
  2. HUMIRA [Suspect]
     Dates: start: 201103, end: 201103
  3. HUMIRA [Suspect]
     Dates: start: 201103, end: 201204
  4. HUMIRA [Suspect]
     Dates: start: 201204
  5. PENTASA [Concomitant]
     Indication: CROHN^S DISEASE

REACTIONS (3)
  - Weight decreased [Not Recovered/Not Resolved]
  - Fatigue [Not Recovered/Not Resolved]
  - Off label use [Not Recovered/Not Resolved]
